FAERS Safety Report 6128174-5 (Version None)
Quarter: 2009Q1

REPORT INFORMATION
  Report Type: 
  Country: None (occurrence: None)
  Receive Date: 20090323
  Receipt Date: 20090309
  Transmission Date: 20090719
  Serious: Yes (Life-Threatening)
  Sender: FDA-Public Use
  Company Number: JP-ROCHE-621222

PATIENT
  Age: 39 Year
  Sex: Female
  Weight: 74 kg

DRUGS (5)
  1. TAMIFLU [Suspect]
     Indication: INFLUENZA
     Route: 048
     Dates: start: 20090216, end: 20090217
  2. PL [Concomitant]
     Route: 048
  3. ACETAMINOPHEN [Concomitant]
     Route: 048
  4. LOXONIN [Concomitant]
     Dosage: TAKEN AS NEEDED
     Route: 048
  5. MARZULENE-S [Concomitant]
     Dosage: TAKEN AS NEEDED
     Route: 048

REACTIONS (2)
  - AGITATION [None]
  - DELIRIUM [None]
